FAERS Safety Report 12337280 (Version 1)
Quarter: 2016Q2

REPORT INFORMATION
  Report Type: Spontaneous
  Country: US (occurrence: US)
  Receive Date: 20160505
  Receipt Date: 20160505
  Transmission Date: 20160815
  Serious: Yes (Hospitalization, Other)
  Sender: FDA-Public Use
  Company Number: US-APOTEX-2016AP008219

PATIENT
  Age: 66 Year
  Sex: Female

DRUGS (4)
  1. SIMVASTATIN. [Concomitant]
     Active Substance: SIMVASTATIN
     Indication: HYPERLIPIDAEMIA
     Dosage: 20 MG DAILY
     Route: 065
  2. ALENDRONATE SODIUM. [Suspect]
     Active Substance: ALENDRONATE SODIUM
     Indication: OSTEOPENIA
     Dosage: UNK UNK, UNKNOWN
     Route: 065
  3. IBANDRONATE SODIUM. [Suspect]
     Active Substance: IBANDRONATE SODIUM
     Indication: OSTEOPENIA
     Dosage: UNK UNK, UNKNOWN
     Route: 065
  4. PANTOPRAZOLE SODIUM DELAYED-RELEASE TABLETS USP [Suspect]
     Active Substance: PANTOPRAZOLE SODIUM
     Indication: OESOPHAGEAL ULCER PERFORATION
     Dosage: 40 MG DAILY
     Route: 065

REACTIONS (2)
  - Atypical femur fracture [Recovered/Resolved]
  - Periprosthetic fracture [Recovered/Resolved]
